FAERS Safety Report 5659171-1 (Version None)
Quarter: 2008Q1

REPORT INFORMATION
  Report Type: 
  Country: None (occurrence: None)
  Receive Date: 20080311
  Receipt Date: 20070531
  Transmission Date: 20080703
  Serious: No
  Sender: FDA-Public Use
  Company Number: US-BAYER-200711760BCC

PATIENT
  Age: 73 Year
  Sex: Male
  Weight: 116 kg

DRUGS (6)
  1. ALEVE [Suspect]
     Indication: BACK PAIN
     Route: 048
     Dates: start: 20070101
  2. GLIPIZIDE [Concomitant]
  3. CRESTOR [Concomitant]
  4. ATENOLOL [Concomitant]
  5. WALGREEN'S ASPIRIN [Concomitant]
  6. CENTRUM SILVER [Concomitant]

REACTIONS (1)
  - CONSTIPATION [None]
